FAERS Safety Report 11424373 (Version 1)
Quarter: 2015Q3

REPORT INFORMATION
  Report Type: Spontaneous
  Country: FR (occurrence: FR)
  Receive Date: 20150827
  Receipt Date: 20150827
  Transmission Date: 20151125
  Serious: Yes (Hospitalization, Other)
  Sender: FDA-Public Use
  Company Number: FR-PFIZER INC-2015279788

PATIENT
  Age: 90 Year
  Sex: Female

DRUGS (8)
  1. REPAGLINIDE. [Concomitant]
     Active Substance: REPAGLINIDE
  2. LERCAN [Concomitant]
     Active Substance: LERCANIDIPINE
  3. NEOMERCAZOLE [Concomitant]
     Active Substance: CARBIMAZOLE
  4. ZYVOXID [Suspect]
     Active Substance: LINEZOLID
     Indication: BACTERIAL SEPSIS
     Dosage: 600 MG, 2X/DAY
     Route: 042
     Dates: start: 20150710, end: 20150718
  5. PIPERACILLIN AND TAZOBACTAM [Suspect]
     Active Substance: PIPERACILLIN SODIUM\TAZOBACTAM SODIUM
     Dosage: 4 G, 3X/DAY
     Route: 042
     Dates: start: 20150710, end: 20150718
  6. KARDEGIC [Concomitant]
     Active Substance: ASPIRIN LYSINE
  7. INSULIN [Concomitant]
     Active Substance: INSULIN NOS
  8. PIPERACILLIN AND TAZOBACTAM [Suspect]
     Active Substance: PIPERACILLIN SODIUM\TAZOBACTAM SODIUM
     Indication: URINARY TRACT INFECTION
     Dosage: UNK
     Route: 042
     Dates: start: 20150620, end: 20150706

REACTIONS (2)
  - Status epilepticus [Recovered/Resolved]
  - Myoclonus [Recovered/Resolved]

NARRATIVE: CASE EVENT DATE: 20150715
